FAERS Safety Report 7504105-8 (Version None)
Quarter: 2011Q2

REPORT INFORMATION
  Report Type: 
  Country: None (occurrence: None)
  Receive Date: 20110524
  Receipt Date: 20110524
  Transmission Date: 20111010
  Serious: Yes (Death, Hospitalization)
  Sender: FDA-Public Use
  Company Number: None

PATIENT
  Sex: Male

DRUGS (1)
  1. VITAMIN D [Suspect]
     Indication: VITAMIN D ABNORMAL
     Dosage: 10,000 IU'S DAILY
     Dates: start: 20100917, end: 20101216

REACTIONS (4)
  - HEADACHE [None]
  - GENERAL PHYSICAL HEALTH DETERIORATION [None]
  - HAEMORRHAGE [None]
  - CEREBRAL HAEMORRHAGE [None]
